FAERS Safety Report 26098334 (Version 2)
Quarter: 2025Q4

REPORT INFORMATION
  Report Type: Spontaneous
  Country: KR (occurrence: KR)
  Receive Date: 20251127
  Receipt Date: 20251212
  Transmission Date: 20260117
  Serious: Yes (Other)
  Sender: DAIICHI
  Company Number: KR-DSJP-DS-2025-178969-KR

PATIENT
  Sex: Female

DRUGS (1)
  1. ENHERTU [Suspect]
     Active Substance: FAM-TRASTUZUMAB DERUXTECAN-NXKI
     Indication: Breast cancer
     Dosage: UNK MG/KG, ( UNK )CYCLE
     Route: 042
     Dates: start: 20251030

REACTIONS (8)
  - Metastases to lung [Not Recovered/Not Resolved]
  - Pulmonary oedema [Not Recovered/Not Resolved]
  - Alopecia [Not Recovered/Not Resolved]
  - Pleural effusion [Recovered/Resolved]
  - Feeding disorder [Not Recovered/Not Resolved]
  - Abdominal discomfort [Not Recovered/Not Resolved]
  - Dyspepsia [Not Recovered/Not Resolved]
  - Abdominal distension [Not Recovered/Not Resolved]
